FAERS Safety Report 7006149-1 (Version None)
Quarter: 2010Q3

REPORT INFORMATION
  Report Type: 
  Country: None (occurrence: None)
  Receive Date: 20100921
  Receipt Date: 20100920
  Transmission Date: 20110219
  Serious: Yes (Other)
  Sender: FDA-Public Use
  Company Number: SG-PFIZER INC-2010118283

PATIENT
  Sex: Female

DRUGS (1)
  1. CELECOXIB [Suspect]
     Dosage: UNK
     Route: 048

REACTIONS (1)
  - HEPATITIS CHOLESTATIC [None]
